FAERS Safety Report 6244030-6 (Version None)
Quarter: 2009Q2

REPORT INFORMATION
  Report Type: 
  Country: None (occurrence: None)
  Receive Date: 20090623
  Receipt Date: 20090615
  Transmission Date: 20091009
  Serious: Yes (Hospitalization)
  Sender: FDA-Public Use
  Company Number: 2009007343

PATIENT
  Sex: Male

DRUGS (5)
  1. TREANDA [Suspect]
     Dosage: (160, MG), INTRAVENOUS
     Route: 042
  2. RITUXIMAB (RITUXIMAB) [Suspect]
     Dosage: (1000 MG), INTRAVENOUS
     Route: 042
  3. PANTOPRAZOLE SODIUM [Concomitant]
  4. ALLOPURINOL [Concomitant]
  5. BIPHASIC INSULIN (INSULIN INJECTION, BIPHASIC) [Concomitant]

REACTIONS (2)
  - DERMAL CYST [None]
  - LIPOMA [None]
